FAERS Safety Report 8345820-6 (Version None)
Quarter: 2012Q2

REPORT INFORMATION
  Report Type: 
  Country: None (occurrence: None)
  Receive Date: 20120509
  Receipt Date: 20120427
  Transmission Date: 20120825
  Serious: Yes (Other)
  Sender: FDA-Public Use
  Company Number: BR-AMGEN-BRASP2012027302

PATIENT
  Sex: Female
  Weight: 67 kg

DRUGS (3)
  1. NIMESULIDE [Concomitant]
     Dosage: UNK
  2. PREDNISONE TAB [Concomitant]
     Dosage: UNK
  3. ENBREL [Suspect]
     Indication: ANKYLOSING SPONDYLITIS
     Dosage: UNK
     Route: 058
     Dates: start: 20110601, end: 20120201

REACTIONS (1)
  - UTERINE DISORDER [None]
